FAERS Safety Report 6505650-4 (Version None)
Quarter: 2009Q4

REPORT INFORMATION
  Report Type: 
  Country: None (occurrence: None)
  Receive Date: 20091217
  Receipt Date: 20091217
  Transmission Date: 20100525
  Serious: Yes (Disabling, Other)
  Sender: FDA-Public Use
  Company Number: None

PATIENT
  Age: 79 Year
  Sex: Male
  Weight: 86.1834 kg

DRUGS (1)
  1. OXYBUTYNIN CHLORIDE [Suspect]
     Indication: BLADDER SPASM
     Dosage: 10 MG SA TAB 1 DAILY MOUTH
     Route: 048
     Dates: start: 20090501, end: 20091201

REACTIONS (1)
  - TOOTH DISORDER [None]
